FAERS Safety Report 8286237-2 (Version None)
Quarter: 2012Q2

REPORT INFORMATION
  Report Type: 
  Country: None (occurrence: None)
  Receive Date: 20120416
  Receipt Date: 20120411
  Transmission Date: 20120825
  Serious: No
  Sender: FDA-Public Use
  Company Number: US-PFIZER INC-2012091526

PATIENT

DRUGS (2)
  1. EFFEXOR XR [Suspect]
     Dosage: 37.5 MG
  2. VENLAFAXINE HCL [Suspect]
     Dosage: UNK

REACTIONS (1)
  - NAUSEA [None]
